FAERS Safety Report 6207277-0 (Version None)
Quarter: 2009Q2

REPORT INFORMATION
  Report Type: 
  Country: None (occurrence: None)
  Receive Date: 20090528
  Receipt Date: 20090516
  Transmission Date: 20091009
  Serious: Yes (Other)
  Sender: FDA-Public Use
  Company Number: US-WYE-H09424209

PATIENT
  Sex: Female

DRUGS (2)
  1. PRISTIQ [Suspect]
     Indication: MAJOR DEPRESSION
     Route: 064
     Dates: start: 20080825
  2. VITAMINS [Concomitant]
     Indication: PRENATAL CARE
     Dosage: UNKNOWN
     Route: 064
     Dates: start: 20080801

REACTIONS (1)
  - PREMATURE BABY [None]
